FAERS Safety Report 8616708 (Version 4)
Quarter: 2016Q2

REPORT INFORMATION
  Report Type: Report from Study
  Country: JP (occurrence: JP)
  Receive Date: 20120615
  Receipt Date: 20160621
  Transmission Date: 20160815
  Serious: Yes (Death)
  Sender: FDA-Public Use
  Company Number: JP-JNJFOC-20120606490

PATIENT
  Age: 39 Year
  Sex: Male

DRUGS (22)
  1. NORVIR [Concomitant]
     Active Substance: RITONAVIR
     Indication: KAPOSI^S SARCOMA AIDS RELATED
     Route: 048
     Dates: start: 20110604, end: 20111017
  2. KALETRA [Concomitant]
     Active Substance: LOPINAVIR\RITONAVIR
     Indication: KAPOSI^S SARCOMA AIDS RELATED
     Route: 048
     Dates: start: 20111018, end: 20111023
  3. METHYCOBAL [Concomitant]
     Active Substance: METHYLCOBALAMIN
     Route: 048
     Dates: start: 20110721, end: 20111117
  4. TARGOCID [Concomitant]
     Active Substance: TEICOPLANIN
     Route: 042
     Dates: start: 20110930, end: 20111023
  5. ZIAGEN [Concomitant]
     Active Substance: ABACAVIR SULFATE
     Indication: KAPOSI^S SARCOMA AIDS RELATED
     Route: 048
     Dates: start: 20111024, end: 20111028
  6. EPIVIR [Concomitant]
     Active Substance: LAMIVUDINE
     Indication: KAPOSI^S SARCOMA AIDS RELATED
     Route: 048
     Dates: start: 20111024, end: 20111028
  7. ISENTRESS [Concomitant]
     Active Substance: RALTEGRAVIR POTASSIUM
     Indication: KAPOSI^S SARCOMA AIDS RELATED
     Route: 048
     Dates: start: 20111024, end: 20111028
  8. LYRICA [Concomitant]
     Active Substance: PREGABALIN
     Route: 048
     Dates: start: 20110729, end: 20111017
  9. MYCOBUTIN [Concomitant]
     Active Substance: RIFABUTIN
     Route: 048
     Dates: start: 20110902, end: 20111023
  10. CRAVIT [Concomitant]
     Active Substance: LEVOFLOXACIN
     Route: 048
     Dates: start: 20110902, end: 20111023
  11. DIPRIVAN [Concomitant]
     Active Substance: PROPOFOL
     Dosage: 300 MG-500 MG
     Route: 042
     Dates: start: 20111017, end: 20111029
  12. PREZISTA [Concomitant]
     Active Substance: DARUNAVIR ETHANOLATE
     Indication: KAPOSI^S SARCOMA AIDS RELATED
     Route: 048
     Dates: start: 20110604, end: 20111017
  13. NEUTROGIN [Concomitant]
     Active Substance: LENOGRASTIM
     Dosage: 300 MG-500 MG
     Route: 065
     Dates: start: 20111024, end: 20111028
  14. EPZICOM [Concomitant]
     Active Substance: ABACAVIR SULFATE\LAMIVUDINE
     Indication: KAPOSI^S SARCOMA AIDS RELATED
     Route: 048
     Dates: start: 20110604, end: 20111023
  15. FUNGUARD [Concomitant]
     Active Substance: MICAFUNGIN SODIUM
     Route: 042
     Dates: start: 20111016, end: 20111027
  16. NEUTROGIN [Concomitant]
     Active Substance: LENOGRASTIM
     Dosage: 300 MG-500 MG
     Route: 065
     Dates: start: 20111018, end: 20111018
  17. FOSCAVIR [Concomitant]
     Active Substance: FOSCARNET SODIUM
     Dosage: 300 MG-500 MG
     Route: 042
     Dates: start: 20110929, end: 20111022
  18. DOBUTAMINE HYDROCHLORIDE. [Concomitant]
     Active Substance: DOBUTAMINE HYDROCHLORIDE
     Dosage: 200-1050 MG
     Route: 042
     Dates: start: 20111024, end: 20111028
  19. DOXIL [Suspect]
     Active Substance: DOXORUBICIN HYDROCHLORIDE
     Indication: KAPOSI^S SARCOMA AIDS RELATED
     Dosage: CYCLE 1
     Route: 042
     Dates: start: 20111017, end: 20111017
  20. ZITHROMAC [Concomitant]
     Active Substance: AZITHROMYCIN DIHYDRATE
     Indication: KAPOSI^S SARCOMA AIDS RELATED
     Route: 048
     Dates: start: 20110526, end: 20111024
  21. LASIX [Concomitant]
     Active Substance: FUROSEMIDE
     Dosage: 300 MG-500 MG
     Route: 042
     Dates: start: 20111020, end: 20111025
  22. ISCOTIN [Concomitant]
     Active Substance: ISONIAZID
     Route: 048
     Dates: start: 20110509, end: 20111023

REACTIONS (6)
  - Acute kidney injury [Fatal]
  - Subarachnoid haemorrhage [Fatal]
  - Pancytopenia [Fatal]
  - Liver disorder [Unknown]
  - Blood pressure decreased [Fatal]
  - Respiratory disorder [Fatal]

NARRATIVE: CASE EVENT DATE: 20111018
